FAERS Safety Report 7796878-4 (Version None)
Quarter: 2011Q4

REPORT INFORMATION
  Report Type: 
  Country: None (occurrence: None)
  Receive Date: 20111003
  Receipt Date: 20110919
  Transmission Date: 20120403
  Serious: Yes (Other)
  Sender: FDA-Public Use
  Company Number: US-ACCORD-010717

PATIENT
  Age: 21 Year
  Sex: Female

DRUGS (1)
  1. TOPIRAMATE [Suspect]
     Indication: MIGRAINE
     Dosage: 250,00 MG-
     Dates: start: 20100501, end: 20110206

REACTIONS (3)
  - STRESS [None]
  - INJURY [None]
  - DISSOCIATIVE DISORDER [None]
